FAERS Safety Report 10274607 (Version 1)
Quarter: 2014Q3

REPORT INFORMATION
  Report Type: Report from Study
  Country: BR (occurrence: BR)
  Receive Date: 20140702
  Receipt Date: 20140702
  Transmission Date: 20150326
  Serious: Yes (Other)
  Sender: FDA-Public Use
  Company Number: PHHY2014BR081681

PATIENT
  Sex: Female
  Weight: 62 kg

DRUGS (4)
  1. PRELONE//PREDNISOLONE [Concomitant]
     Indication: OSTEOPOROSIS
     Dosage: 1 DF, DAILY
     Dates: start: 2011
  2. ACLASTA [Suspect]
     Active Substance: ZOLEDRONIC ACID
     Indication: OSTEOPOROSIS
     Dosage: UNK UKN, ONCE A YEAR
     Route: 042
     Dates: start: 20130704
  3. DILACORON [Concomitant]
     Dosage: 1 DF, DAILY
     Dates: start: 2011
  4. PROLOPA [Concomitant]
     Active Substance: BENSERAZIDE\LEVODOPA
     Indication: PARKINSON^S DISEASE
     Dosage: 1 DF, DAILY
     Dates: start: 2011

REACTIONS (1)
  - Femur fracture [Recovered/Resolved]
